FAERS Safety Report 18613478 (Version 1)
Quarter: 2020Q4

REPORT INFORMATION
  Report Type: Spontaneous
  Country: US (occurrence: US)
  Receive Date: 20201214
  Receipt Date: 20201214
  Transmission Date: 20210114
  Serious: No
  Sender: FDA-Public Use
  Company Number: US-NOVOPROD-708080

PATIENT
  Age: 50 Year
  Sex: Female

DRUGS (1)
  1. LEVEMIR [Suspect]
     Active Substance: INSULIN DETEMIR
     Indication: TYPE 2 DIABETES MELLITUS
     Dosage: 50 IU (50 UNITS)
     Route: 058
     Dates: start: 2017

REACTIONS (6)
  - Nausea [Recovered/Resolved]
  - Dizziness [Not Recovered/Not Resolved]
  - Injection site nerve damage [Not Recovered/Not Resolved]
  - Dizziness [Recovered/Resolved]
  - Ocular discomfort [Not Recovered/Not Resolved]
  - Nausea [Not Recovered/Not Resolved]

NARRATIVE: CASE EVENT DATE: 2019
